FAERS Safety Report 6121607-X (Version None)
Quarter: 2009Q1

REPORT INFORMATION
  Report Type: 
  Country: None (occurrence: None)
  Receive Date: 20090317
  Receipt Date: 20090305
  Transmission Date: 20090719
  Serious: Yes (Other)
  Sender: FDA-Public Use
  Company Number: PHEH2009US02171

PATIENT
  Sex: Female
  Weight: 68.027 kg

DRUGS (2)
  1. RECLAST [Suspect]
     Dosage: 5 MG, ONCE/SINGLE
     Dates: start: 20090213, end: 20090213
  2. FORTEO [Concomitant]
     Dosage: UNK
     Dates: start: 20090216

REACTIONS (13)
  - BLOOD PRESSURE INCREASED [None]
  - BRONCHITIS CHRONIC [None]
  - CELLULITIS [None]
  - COUGH [None]
  - ERYTHEMA [None]
  - JOINT SWELLING [None]
  - MYALGIA [None]
  - OEDEMA PERIPHERAL [None]
  - PAIN IN EXTREMITY [None]
  - PRODUCTIVE COUGH [None]
  - PYREXIA [None]
  - TENDERNESS [None]
  - VENOUS INSUFFICIENCY [None]
